FAERS Safety Report 4984862-5 (Version None)
Quarter: 2006Q1

REPORT INFORMATION
  Report Type: 
  Country: None (occurrence: None)
  Receive Date: 20060307
  Receipt Date: 20050404
  Transmission Date: 20060701
  Serious: Yes (Other)
  Sender: FDA-Public Use
  Company Number: 141774USA

PATIENT
  Sex: Female

DRUGS (3)
  1. AMOXICILLIN [Suspect]
     Indication: SINUSITIS
     Dosage: 500 MILLIGRAM ORAL
     Route: 048
     Dates: start: 20050331, end: 20050402
  2. SUDAFED [Concomitant]
  3. ROBITUSSIN [Concomitant]

REACTIONS (5)
  - BLISTER [None]
  - EYE SWELLING [None]
  - HYPERSENSITIVITY [None]
  - PHARYNGEAL OEDEMA [None]
  - PRURITUS [None]
